FAERS Safety Report 19305537 (Version 2)
Quarter: 2021Q3

REPORT INFORMATION
  Report Type: Report from Study
  Country: US (occurrence: US)
  Receive Date: 20210526
  Receipt Date: 20210811
  Transmission Date: 20211014
  Serious: No
  Sender: FDA-Public Use
  Company Number: NVSC2021US111219

PATIENT
  Sex: Female

DRUGS (1)
  1. COSENTYX [Suspect]
     Active Substance: SECUKINUMAB
     Indication: PSORIATIC ARTHROPATHY
     Dosage: 150 MG
     Route: 058

REACTIONS (6)
  - Nausea [Unknown]
  - Vomiting [Unknown]
  - Cough [Unknown]
  - Diarrhoea [Unknown]
  - COVID-19 [Unknown]
  - Fatigue [Unknown]
